FAERS Safety Report 6454773-7 (Version None)
Quarter: 2009Q4

REPORT INFORMATION
  Report Type: 
  Country: None (occurrence: None)
  Receive Date: 20091118
  Receipt Date: 20090825
  Transmission Date: 20100525
  Serious: Yes (Other)
  Sender: FDA-Public Use
  Company Number: 2009-194640-NL

PATIENT
  Age: 28 Year
  Sex: Female
  Weight: 53 kg

DRUGS (7)
  1. FOLLISTIM [Suspect]
     Indication: OVULATION INDUCTION
     Dosage: 150 IU, QD, SC
     Route: 058
     Dates: start: 20060626, end: 20060702
  2. CHORIONIC GONADOTROPIN [Suspect]
     Indication: OVULATION INDUCTION
     Dosage: 6000 IU, ONCE;
     Dates: start: 20060703, end: 20060703
  3. SUPECUR [Concomitant]
  4. HYDROXYPROGESTERONE CAPROATE [Concomitant]
  5. CAPROATE [Concomitant]
  6. AMOXICILLIN [Concomitant]
  7. LUTORAL [Concomitant]

REACTIONS (5)
  - BREECH PRESENTATION [None]
  - CAESAREAN SECTION [None]
  - OVARIAN HYPERSTIMULATION SYNDROME [None]
  - PREGNANCY [None]
  - PREMATURE RUPTURE OF MEMBRANES [None]
